FAERS Safety Report 7190800-X (Version None)
Quarter: 2010Q4

REPORT INFORMATION
  Report Type: 
  Country: None (occurrence: None)
  Receive Date: 20101221
  Receipt Date: 20101221
  Transmission Date: 20110411
  Serious: No
  Sender: FDA-Public Use
  Company Number: None

PATIENT
  Age: 62 Year
  Sex: Male
  Weight: 82.5547 kg

DRUGS (2)
  1. TAMSULOSIN HCL [Suspect]
     Indication: BENIGN PROSTATIC HYPERPLASIA
     Dosage: 0.4MG DAILY PO
     Route: 048
     Dates: start: 20100604, end: 20101014
  2. FLOMAX [Suspect]

REACTIONS (5)
  - DYSPHONIA [None]
  - MICTURITION URGENCY [None]
  - POLLAKIURIA [None]
  - PRODUCT SUBSTITUTION ISSUE [None]
  - UPPER-AIRWAY COUGH SYNDROME [None]
